FAERS Safety Report 5917732-6 (Version None)
Quarter: 2008Q4

REPORT INFORMATION
  Report Type: 
  Country: None (occurrence: None)
  Receive Date: 20081014
  Receipt Date: 20081003
  Transmission Date: 20090506
  Serious: Yes (Other)
  Sender: FDA-Public Use
  Company Number: BR-BAYER-200819048LA

PATIENT
  Age: 41 Year
  Sex: Female

DRUGS (1)
  1. MAGNEVISTAN [Suspect]
     Indication: DRUG USE FOR UNKNOWN INDICATION
     Route: 042
     Dates: start: 20080930, end: 20080930

REACTIONS (2)
  - COUGH [None]
  - DYSPHAGIA [None]
